FAERS Safety Report 16694918 (Version 1)
Quarter: 2019Q3

REPORT INFORMATION
  Report Type: Spontaneous
  Country: DE (occurrence: DE)
  Receive Date: 20190812
  Receipt Date: 20190812
  Transmission Date: 20191004
  Serious: Yes (Hospitalization)
  Sender: FDA-Public Use
  Company Number: PHHY2019DE182953

PATIENT
  Age: 51 Year
  Sex: Male

DRUGS (1)
  1. HEPARIN [Suspect]
     Active Substance: HEPARIN SODIUM
     Indication: PORTAL VEIN THROMBOSIS
     Dosage: UNK
     Route: 065

REACTIONS (5)
  - Heparin-induced thrombocytopenia [Not Recovered/Not Resolved]
  - Rash macular [Not Recovered/Not Resolved]
  - Product impurity [Unknown]
  - Drug intolerance [Not Recovered/Not Resolved]
  - Rash generalised [Not Recovered/Not Resolved]

NARRATIVE: CASE EVENT DATE: 201907
